FAERS Safety Report 9980162 (Version 1)
Quarter: 2014Q1

REPORT INFORMATION
  Report Type: Report from Study
  Country: US (occurrence: US)
  Receive Date: 20140307
  Receipt Date: 20140307
  Transmission Date: 20141002
  Serious: No
  Sender: FDA-Public Use
  Company Number: US-ABBVIE-13P-163-1174579-00

PATIENT
  Age: 66 Year
  Sex: Female

DRUGS (12)
  1. HUMIRA [Suspect]
     Indication: RHEUMATOID ARTHRITIS
     Dosage: INITIAL DOSE
     Dates: start: 20131112
  2. METHOCARBAMOL [Concomitant]
     Indication: MUSCLE RELAXANT THERAPY
  3. GABAPENTIN [Concomitant]
     Indication: NERVE INJURY
  4. PREDNISONE [Concomitant]
     Indication: RHEUMATOID ARTHRITIS
  5. LEFLUNOMIDE [Concomitant]
     Indication: BONE DISORDER
  6. NAMENDA [Concomitant]
     Indication: AMNESIA
  7. EXELON [Concomitant]
     Indication: AMNESIA
     Dosage: PATCH
  8. HYDROCHLOROTHIAZIDE [Concomitant]
     Indication: BLOOD PRESSURE
  9. PANTOPRAZOLE [Concomitant]
     Indication: GASTRIC DISORDER
  10. ADVAIR [Concomitant]
     Indication: PRODUCT USED FOR UNKNOWN INDICATION
     Dosage: INHALER 250-50 ONE OR TWO TIMES DAILY
  11. ALBUTEROL [Concomitant]
     Indication: PRODUCT USED FOR UNKNOWN INDICATION
     Dosage: INHALER
  12. COMBIVENT [Concomitant]
     Indication: ASTHMA
     Dosage: INHALER TWO TIMES DAILY

REACTIONS (1)
  - Injection site bruising [Not Recovered/Not Resolved]
